FAERS Safety Report 7651260-5 (Version None)
Quarter: 2011Q3

REPORT INFORMATION
  Report Type: 
  Country: None (occurrence: None)
  Receive Date: 20110802
  Receipt Date: 20110727
  Transmission Date: 20111222
  Serious: Yes (Other)
  Sender: FDA-Public Use
  Company Number: JP-GENZYME-FLUD-1000700

PATIENT
  Age: 3 Year
  Sex: Female

DRUGS (5)
  1. MELPHALAN HYDROCHLORIDE [Suspect]
     Indication: STEM CELL TRANSPLANT
     Dosage: 140 MG/M2, UNK
     Route: 065
  2. TACROLIMUS [Concomitant]
     Indication: PROPHYLAXIS AGAINST GRAFT VERSUS HOST DISEASE
     Dosage: UNK
     Route: 065
  3. THYMOGLOBULIN [Suspect]
     Indication: STEM CELL TRANSPLANT
     Dosage: UNK
     Route: 065
  4. METHOTREXATE [Concomitant]
     Indication: PROPHYLAXIS AGAINST GRAFT VERSUS HOST DISEASE
     Dosage: 7.5 MG/M2 ON DAYS 1, 3, AND 6
     Route: 065
  5. FLUDARA [Suspect]
     Indication: STEM CELL TRANSPLANT
     Dosage: 180 MG/M2, UNK
     Route: 065

REACTIONS (1)
  - ACUTE GRAFT VERSUS HOST DISEASE [None]
